FAERS Safety Report 25729455 (Version 4)
Quarter: 2025Q4

REPORT INFORMATION
  Report Type: Report from Study
  Country: US (occurrence: US)
  Receive Date: 20250827
  Receipt Date: 20251211
  Transmission Date: 20260118
  Serious: Yes (Other)
  Sender: ABBVIE
  Company Number: US-ABBVIE-6293899

PATIENT
  Age: 47 Year
  Sex: Female

DRUGS (3)
  1. RINVOQ [Suspect]
     Active Substance: UPADACITINIB
     Indication: Crohn^s disease
     Dosage: DOSE FORM: TABLET, FORM STRENGTH: 30 MILLIGRAM
     Route: 048
     Dates: start: 20230305, end: 202502
  2. RINVOQ [Suspect]
     Active Substance: UPADACITINIB
     Indication: Crohn^s disease
     Dosage: DOSE FORM: TABLET, FORM STRENGTH: 15 MILLIGRAM
     Route: 048
     Dates: start: 202502, end: 20250618
  3. RINVOQ [Suspect]
     Active Substance: UPADACITINIB
     Indication: Crohn^s disease
     Route: 048
     Dates: start: 20240227

REACTIONS (9)
  - Colectomy [Recovering/Resolving]
  - Diarrhoea [Recovering/Resolving]
  - Dehydration [Recovering/Resolving]
  - Fatigue [Unknown]
  - Colonic fistula [Recovering/Resolving]
  - Anorectal operation [Unknown]
  - Weight decreased [Unknown]
  - Vaginal operation [Unknown]
  - Ostomy bag placement [Unknown]

NARRATIVE: CASE EVENT DATE: 20250101
